FAERS Safety Report 5191109-6 (Version None)
Quarter: 2006Q4

REPORT INFORMATION
  Report Type: 
  Country: None (occurrence: None)
  Receive Date: 20061226
  Receipt Date: 20061215
  Transmission Date: 20070319
  Serious: Yes (Other)
  Sender: FDA-Public Use
  Company Number: PHBS2006ES19728

PATIENT
  Age: 65 Year
  Sex: Female

DRUGS (1)
  1. IMATINIB MESYLATE [Suspect]
     Indication: CHRONIC MYELOID LEUKAEMIA
     Dosage: 400 MG/DAY
     Dates: start: 20020101

REACTIONS (5)
  - LICHEN PLANUS [None]
  - ORAL MUCOSAL ERUPTION [None]
  - ORAL PAIN [None]
  - PRURITUS [None]
  - RASH PAPULAR [None]
